FAERS Safety Report 7077171-4 (Version None)
Quarter: 2010Q4

REPORT INFORMATION
  Report Type: 
  Country: None (occurrence: None)
  Receive Date: 20101101
  Receipt Date: 20101022
  Transmission Date: 20110411
  Serious: Yes (Hospitalization)
  Sender: FDA-Public Use
  Company Number: B0669542A

PATIENT
  Sex: Female

DRUGS (4)
  1. PAXIL [Suspect]
     Indication: DEPRESSION
     Dosage: 10MG PER DAY
     Route: 048
     Dates: start: 20100510, end: 20100619
  2. LENDORMIN [Concomitant]
     Indication: INSOMNIA
     Dosage: 10MG PER DAY
     Route: 048
     Dates: start: 20100510, end: 20100619
  3. DEPAS [Concomitant]
     Indication: ANXIETY
     Dosage: 9MG PER DAY
     Route: 048
     Dates: start: 20100510, end: 20100619
  4. PURSENNID [Concomitant]
     Indication: CONSTIPATION
     Dosage: 12MG PER DAY
     Route: 048
     Dates: start: 20100510

REACTIONS (1)
  - EPILEPSY [None]
